FAERS Safety Report 8508196-7 (Version None)
Quarter: 2012Q3

REPORT INFORMATION
  Report Type: 
  Country: None (occurrence: None)
  Receive Date: 20120713
  Receipt Date: 20120711
  Transmission Date: 20120928
  Serious: Yes (Other)
  Sender: FDA-Public Use
  Company Number: IT-PFIZER INC-2012167781

PATIENT
  Age: 64 Year
  Sex: Female

DRUGS (1)
  1. EFFEXOR XR [Suspect]
     Dosage: 75 MG, DAILY
     Route: 048
     Dates: start: 20120630, end: 20120703

REACTIONS (1)
  - HYPERTENSIVE CRISIS [None]
